FAERS Safety Report 20654339 (Version 3)
Quarter: 2022Q4

REPORT INFORMATION
  Report Type: Spontaneous
  Country: JP (occurrence: JP)
  Receive Date: 20220330
  Receipt Date: 20221027
  Transmission Date: 20230113
  Serious: Yes (Life-Threatening, Hospitalization, Other)
  Sender: FDA-Public Use
  Company Number: JP-MLMSERVICE-20220316-3434137-1

PATIENT
  Age: 72 Year
  Sex: Female

DRUGS (2)
  1. METHOTREXATE SODIUM [Suspect]
     Active Substance: METHOTREXATE SODIUM
     Indication: Rheumatoid arthritis
     Dosage: 6 MG, WEEKLY
  2. IGURATIMOD [Suspect]
     Active Substance: IGURATIMOD
     Indication: Rheumatoid arthritis
     Dosage: 25 MG, 1X/DAY

REACTIONS (5)
  - Lymphoproliferative disorder [Unknown]
  - Herpes zoster meningoencephalitis [Unknown]
  - Meningoencephalitis viral [Unknown]
  - Epstein-Barr virus infection reactivation [Unknown]
  - Varicella zoster pneumonia [Recovered/Resolved with Sequelae]
